FAERS Safety Report 9834081 (Version 3)
Quarter: 2014Q1

REPORT INFORMATION
  Report Type: Report from Study
  Country: CO (occurrence: CO)
  Receive Date: 20140122
  Receipt Date: 20140128
  Transmission Date: 20141002
  Serious: Yes (Life-Threatening, Hospitalization)
  Sender: FDA-Public Use
  Company Number: CO-ROCHE-1089706

PATIENT
  Age: 62 Year
  Sex: Male
  Weight: 50.6 kg

DRUGS (11)
  1. BLINDED TOCILIZUMAB [Suspect]
     Indication: RHEUMATOID ARTHRITIS
     Dosage: DATE OF MOST RECENT DOSE : 11/JAN/2012
     Route: 058
     Dates: start: 20111031
  2. TOCILIZUMAB [Suspect]
     Indication: RHEUMATOID ARTHRITIS
     Dosage: DATE OF MOST RECENT DOSE OF OPEN LABEL DRUG: 28/JUN/2012
     Route: 058
     Dates: start: 20120123
  3. NAPROXEN [Suspect]
     Indication: PRODUCT USED FOR UNKNOWN INDICATION
     Route: 065
  4. TRAMADOL [Concomitant]
     Indication: RHEUMATOID ARTHRITIS
     Route: 048
     Dates: start: 201011
  5. METHOTREXATE [Concomitant]
     Indication: RHEUMATOID ARTHRITIS
     Route: 048
     Dates: start: 201011
  6. FOLIC ACID [Concomitant]
     Route: 048
     Dates: start: 201011
  7. PRENISOLONE [Concomitant]
     Indication: RHEUMATOID ARTHRITIS
     Route: 048
     Dates: start: 201011
  8. LOSARTAN [Concomitant]
     Route: 048
     Dates: start: 201005
  9. LEVO-THYROXINE [Concomitant]
     Route: 048
     Dates: start: 201012
  10. NYSTATIN [Concomitant]
     Route: 048
     Dates: start: 20120711, end: 20120720
  11. FLUCONAZOLE [Concomitant]
     Route: 048
     Dates: start: 20120711, end: 20120720

REACTIONS (1)
  - Gastroduodenal ulcer [Recovered/Resolved]
